FAERS Safety Report 4556879-6 (Version None)
Quarter: 2005Q1

REPORT INFORMATION
  Report Type: 
  Country: None (occurrence: None)
  Receive Date: 20050119
  Receipt Date: 20050119
  Transmission Date: 20050727
  Serious: Yes (Other)
  Sender: FDA-Public Use
  Company Number: None

PATIENT
  Age: 25 Year
  Sex: Female
  Weight: 68.0396 kg

DRUGS (3)
  1. EFFEXOR XR [Suspect]
     Indication: ANXIETY
     Dosage: 75MG   ONCE DAILY   ORAL
     Route: 048
     Dates: start: 20020707, end: 20050119
  2. EFFEXOR XR [Suspect]
     Indication: DEPRESSION
     Dosage: 75MG   ONCE DAILY   ORAL
     Route: 048
     Dates: start: 20020707, end: 20050119
  3. EFFEXOR [Suspect]
     Dosage: 25 MG   ONCE DAILY   ORAL
     Route: 048

REACTIONS (6)
  - CHILLS [None]
  - DIZZINESS [None]
  - INSOMNIA [None]
  - MOOD SWINGS [None]
  - NERVOUS SYSTEM DISORDER [None]
  - VERTIGO [None]
